FAERS Safety Report 21995741 (Version 1)
Quarter: 2023Q1

REPORT INFORMATION
  Report Type: Spontaneous
  Country: US (occurrence: US)
  Receive Date: 20230215
  Receipt Date: 20230215
  Transmission Date: 20230418
  Serious: Yes (Other)
  Sender: FDA-Public Use
  Company Number: US-SA-SAC20230214001277

PATIENT
  Age: 5 Year
  Sex: Male

DRUGS (1)
  1. XYZAL [Suspect]
     Active Substance: LEVOCETIRIZINE DIHYDROCHLORIDE
     Indication: Hypersensitivity
     Dosage: DAILY
     Route: 048
     Dates: start: 20230101, end: 20230201

REACTIONS (2)
  - Suicidal ideation [Recovered/Resolved]
  - Behaviour disorder [Recovered/Resolved]
